FAERS Safety Report 22014662 (Version 2)
Quarter: 2023Q2

REPORT INFORMATION
  Report Type: Spontaneous
  Country: JP (occurrence: JP)
  Receive Date: 20230221
  Receipt Date: 20230406
  Transmission Date: 20230722
  Serious: Yes (Hospitalization)
  Sender: FDA-Public Use
  Company Number: JP-ZAMBON-202300307COR

PATIENT
  Age: 49 Year
  Sex: Male

DRUGS (1)
  1. SAFINAMIDE [Suspect]
     Active Substance: SAFINAMIDE
     Indication: Product used for unknown indication
     Dosage: NOT PROVIDED
     Route: 048

REACTIONS (1)
  - Hypoglycaemia [Recovering/Resolving]
